FAERS Safety Report 8162137-3 (Version None)
Quarter: 2012Q1

REPORT INFORMATION
  Report Type: 
  Country: None (occurrence: None)
  Receive Date: 20120224
  Receipt Date: 20111108
  Transmission Date: 20120608
  Serious: No
  Sender: FDA-Public Use
  Company Number: US-BRISTOL-MYERS SQUIBB COMPANY-16203952

PATIENT
  Age: 82 Year
  Sex: Male

DRUGS (3)
  1. LANTUS [Suspect]
     Indication: TYPE 2 DIABETES MELLITUS
     Dosage: SOLOSTAR 1 DF: 10 UNITS 100IU/ML
     Route: 058
     Dates: start: 20111010
  2. METFORMIN HCL [Suspect]
     Dosage: EXTENDED RELEASE
     Route: 065
  3. NATEGLINIDE [Suspect]

REACTIONS (2)
  - BLOOD GLUCOSE INCREASED [None]
  - INJECTION SITE HAEMATOMA [None]
